FAERS Safety Report 12553426 (Version 1)
Quarter: 2016Q3

REPORT INFORMATION
  Report Type: Spontaneous
  Country: TW (occurrence: HK)
  Receive Date: 20160713
  Receipt Date: 20160713
  Transmission Date: 20161109
  Serious: Yes (Other)
  Sender: FDA-Public Use
  Company Number: PHHY2015HK175970

PATIENT
  Sex: Male

DRUGS (1)
  1. NEORAL [Suspect]
     Active Substance: CYCLOSPORINE
     Indication: PRODUCT USED FOR UNKNOWN INDICATION
     Route: 065

REACTIONS (6)
  - Aplastic anaemia [Unknown]
  - Parvovirus infection [Unknown]
  - Donor specific antibody present [Unknown]
  - IgA nephropathy [Unknown]
  - Squamous cell carcinoma [Unknown]
  - Nasopharyngeal cancer [Unknown]

NARRATIVE: CASE EVENT DATE: 20120101
